FAERS Safety Report 20995636 (Version 2)
Quarter: 2022Q4

REPORT INFORMATION
  Report Type: Report from Study
  Country: CA (occurrence: CA)
  Receive Date: 20220623
  Receipt Date: 20221117
  Transmission Date: 20230113
  Serious: Yes (Other)
  Sender: FDA-Public Use
  Company Number: CA-ABBVIE-22K-028-4439387-00

PATIENT
  Age: 46 Year
  Sex: Female

DRUGS (5)
  1. RINVOQ [Suspect]
     Active Substance: UPADACITINIB
     Indication: Rheumatoid arthritis
     Route: 048
     Dates: start: 20200728
  2. COVID-19 VACCINE [Concomitant]
     Indication: COVID-19 prophylaxis
     Dosage: TIME INTERVAL: 1 TOTAL: DOSE 1
     Route: 030
  3. COVID-19 VACCINE [Concomitant]
     Indication: COVID-19 prophylaxis
     Dosage: TIME INTERVAL: 1 TOTAL: DOSE 2
     Route: 030
  4. COVID-19 VACCINE [Concomitant]
     Indication: COVID-19 prophylaxis
     Dosage: TIME INTERVAL: 1 TOTAL: DOSE 3  (BOOSTER DOSE)
     Route: 030
  5. COVID-19 VACCINE [Concomitant]
     Indication: COVID-19 prophylaxis
     Dosage: TIME INTERVAL: 1 TOTAL: DOSE 4 (BOOSTER DOSE)
     Route: 030

REACTIONS (10)
  - Arthropathy [Unknown]
  - COVID-19 [Unknown]
  - Femur fracture [Unknown]
  - Nasal congestion [Unknown]
  - Nasal dryness [Unknown]
  - Epistaxis [Unknown]
  - Fatigue [Unknown]
  - Rash [Unknown]
  - Dysstasia [Unknown]
  - Gait disturbance [Unknown]

NARRATIVE: CASE EVENT DATE: 20211201
